FAERS Safety Report 16567421 (Version 1)
Quarter: 2019Q3

REPORT INFORMATION
  Report Type: Report from Study
  Country: US (occurrence: US)
  Receive Date: 20190712
  Receipt Date: 20190712
  Transmission Date: 20191004
  Serious: Yes (Death)
  Sender: FDA-Public Use
  Company Number: US-RECRO GAINESVILLE LLC-REPH-2019-000110

PATIENT
  Sex: Male

DRUGS (9)
  1. VERAPAMIL HYDROCHLORIDE SUSTAINED RELEASE [Suspect]
     Active Substance: VERAPAMIL HYDROCHLORIDE
     Dosage: 120 MILLIGRAM, TID, STARTED DAY 11
     Route: 048
  2. DIGOXIN. [Suspect]
     Active Substance: DIGOXIN
     Dosage: 0.875 MILLIGRAM, BID
     Route: 048
  3. VERAPAMIL HYDROCHLORIDE SUSTAINED RELEASE [Suspect]
     Active Substance: VERAPAMIL HYDROCHLORIDE
     Indication: SUPRAVENTRICULAR TACHYCARDIA
     Dosage: 80 MILLIGRAM, TID, STARTED DAY 8
     Route: 048
  4. DIGOXIN. [Suspect]
     Active Substance: DIGOXIN
     Dosage: 0.75-1 MILLIGRAM, QD
     Route: 042
  5. DIGOXIN. [Suspect]
     Active Substance: DIGOXIN
     Dosage: 0.5 MILLIGRAM, QD, STARTING DAY 13
     Route: 042
  6. DIGOXIN. [Suspect]
     Active Substance: DIGOXIN
     Dosage: 0.5 MILLIGRAM, BID
     Route: 048
  7. DIGOXIN. [Suspect]
     Active Substance: DIGOXIN
     Dosage: 0.625 MILLIGRAM, QID, STARTED DAY 19
     Route: 048
  8. PROPRANOLOL [Concomitant]
     Active Substance: PROPRANOLOL HYDROCHLORIDE
     Indication: SUPRAVENTRICULAR TACHYCARDIA
     Dosage: 20 MILLIGRAM, QID, STARTING DAY 3
     Route: 048
  9. DIGOXIN. [Suspect]
     Active Substance: DIGOXIN
     Indication: SUPRAVENTRICULAR TACHYCARDIA
     Dosage: 1.25 MILLIGRAM, FIRST 24 HOURS

REACTIONS (3)
  - Off label use [Unknown]
  - Drug interaction [Unknown]
  - Foetal death [Fatal]
